FAERS Safety Report 4666978-6 (Version None)
Quarter: 2005Q2

REPORT INFORMATION
  Report Type: 
  Country: None (occurrence: None)
  Receive Date: 20050518
  Receipt Date: 20050225
  Transmission Date: 20051028
  Serious: Yes (Other)
  Sender: FDA-Public Use
  Company Number: 2005037993

PATIENT
  Age: 31 Year
  Sex: Female
  Weight: 93.441 kg

DRUGS (2)
  1. DEPO-PROVERA [Suspect]
     Indication: ILL-DEFINED DISORDER
     Dosage: SEE IMAGE
     Dates: start: 20040201, end: 20040201
  2. DEPO-PROVERA [Suspect]
     Indication: ILL-DEFINED DISORDER
     Dosage: SEE IMAGE
     Dates: start: 20050114, end: 20050114

REACTIONS (2)
  - METRORRHAGIA [None]
  - WEIGHT INCREASED [None]
